FAERS Safety Report 8804141 (Version 1)
Quarter: 2012Q4

REPORT INFORMATION
  Report Type: 
  Country: US (occurrence: US)
  Receive Date: 20120924
  Receipt Date: 20120924
  Transmission Date: 20130627
  Serious: Yes (Hospitalization)
  Sender: FDA-Public Use
  Company Number: US-SANOFI-AVENTIS-2012SA067289

PATIENT
  Age: 88 Year
  Sex: Female

DRUGS (2)
  1. LANTUS SOLOSTAR [Suspect]
     Dosage: Dose:60 unit(s)
     Route: 058
  2. SOLOSTAR [Suspect]

REACTIONS (1)
  - Hospitalisation [Recovered/Resolved]
